FAERS Safety Report 17989111 (Version 1)
Quarter: 2020Q3

REPORT INFORMATION
  Report Type: Report from Study
  Country: IT (occurrence: IT)
  Receive Date: 20200707
  Receipt Date: 20200707
  Transmission Date: 20201103
  Serious: Yes (Hospitalization)
  Sender: FDA-Public Use
  Company Number: IT-TEVA-2020-IT-1796063

PATIENT
  Age: 89 Year
  Sex: Male

DRUGS (5)
  1. ASCRIPTIN [Suspect]
     Active Substance: ASPIRIN
     Route: 048
  2. TRIATEC 2,5 MG COMPRESSE [Concomitant]
     Active Substance: RAMIPRIL
  3. LOPRESOR [Concomitant]
     Active Substance: METOPROLOL
  4. LANSOX [Concomitant]
     Active Substance: LANSOPRAZOLE
  5. CLOPIDOGREL [Suspect]
     Active Substance: CLOPIDOGREL BISULFATE
     Route: 065

REACTIONS (1)
  - Diarrhoea haemorrhagic [Recovering/Resolving]

NARRATIVE: CASE EVENT DATE: 20200105
